FAERS Safety Report 5880284-3 (Version None)
Quarter: 2008Q3

REPORT INFORMATION
  Report Type: 
  Country: None (occurrence: None)
  Receive Date: 20080912
  Receipt Date: 20080905
  Transmission Date: 20090109
  Serious: Yes (Other)
  Sender: FDA-Public Use
  Company Number: PHBS2008IT05631

PATIENT
  Age: 65 Year
  Sex: Female

DRUGS (1)
  1. DICLOFENAC [Suspect]
     Route: 030

REACTIONS (4)
  - EMBOLIA CUTIS MEDICAMENTOSA [None]
  - ERYTHEMA [None]
  - INDURATION [None]
  - PAIN [None]
